FAERS Safety Report 8457575-5 (Version None)
Quarter: 2012Q2

REPORT INFORMATION
  Report Type: 
  Country: None (occurrence: None)
  Receive Date: 20120622
  Receipt Date: 20120611
  Transmission Date: 20120825
  Serious: Yes (Hospitalization)
  Sender: FDA-Public Use
  Company Number: BR-BIOGENIDEC-2010BI004837

PATIENT
  Sex: Female
  Weight: 53 kg

DRUGS (2)
  1. AVONEX [Suspect]
     Indication: MULTIPLE SCLEROSIS
     Route: 030
     Dates: start: 20020101
  2. BROMAZEPAN [Concomitant]
     Indication: SLEEP DISORDER

REACTIONS (9)
  - GENERAL SYMPTOM [None]
  - TOXICITY TO VARIOUS AGENTS [None]
  - GASTRIC DISORDER [None]
  - NERVOUSNESS [None]
  - RESTLESSNESS [None]
  - INFLUENZA LIKE ILLNESS [None]
  - DEHYDRATION [None]
  - PAIN [None]
  - MOOD ALTERED [None]
